FAERS Safety Report 24936861 (Version 2)
Quarter: 2025Q1

REPORT INFORMATION
  Report Type: Spontaneous
  Country: ES (occurrence: ES)
  Receive Date: 20250206
  Receipt Date: 20250212
  Transmission Date: 20250409
  Serious: Yes (Hospitalization)
  Sender: PFIZER
  Company Number: ES-MLMSERVICE-20250127-PI326882-00232-1

PATIENT
  Age: 52 Year
  Sex: Male

DRUGS (8)
  1. METHYLPREDNISOLONE SODIUM SUCCINATE [Suspect]
     Active Substance: METHYLPREDNISOLONE SODIUM SUCCINATE
     Indication: Immunosuppressant drug therapy
     Dates: start: 202301, end: 2023
  2. THYMOGLOBULIN [Suspect]
     Active Substance: LAPINE T-LYMPHOCYTE IMMUNE GLOBULIN
     Indication: Immunosuppressant drug therapy
     Dates: start: 202301, end: 202301
  3. PREDNISONE [Suspect]
     Active Substance: PREDNISONE
     Indication: Immunosuppressant drug therapy
     Dates: start: 2023
  4. TACROLIMUS [Suspect]
     Active Substance: TACROLIMUS
     Indication: Immunosuppressant drug therapy
     Dates: start: 2023, end: 2023
  5. TACROLIMUS [Suspect]
     Active Substance: TACROLIMUS
  6. MYCOPHENOLIC ACID [Suspect]
     Active Substance: MYCOPHENOLIC ACID
     Indication: Immunosuppressant drug therapy
     Dosage: 720 MG, 2X/DAY (MAINTENANCE DOSE)
     Dates: start: 2023, end: 2023
  7. SULFAMETHOXAZOLE\TRIMETHOPRIM [Concomitant]
     Active Substance: SULFAMETHOXAZOLE\TRIMETHOPRIM
     Indication: Prophylaxis
     Dates: start: 2023
  8. VALGANCICLOVIR [Concomitant]
     Active Substance: VALGANCICLOVIR
     Indication: Prophylaxis
     Dates: start: 2023

REACTIONS (11)
  - Campylobacter gastroenteritis [Unknown]
  - BK virus infection [Unknown]
  - Infection reactivation [Unknown]
  - Aeromonas infection [Unknown]
  - Enterococcal infection [Unknown]
  - Epstein-Barr virus infection [Not Recovered/Not Resolved]
  - Enterocolitis viral [Not Recovered/Not Resolved]
  - Small intestinal perforation [Unknown]
  - Salmonellosis [Recovered/Resolved]
  - Food poisoning [Recovered/Resolved]
  - Colitis ulcerative [Recovered/Resolved]

NARRATIVE: CASE EVENT DATE: 20230101
